FAERS Safety Report 7434329-X (Version None)
Quarter: 2011Q2

REPORT INFORMATION
  Report Type: 
  Country: None (occurrence: None)
  Receive Date: 20110425
  Receipt Date: 20110421
  Transmission Date: 20111010
  Serious: No
  Sender: FDA-Public Use
  Company Number: US-PFIZER INC-2011087491

PATIENT
  Age: 42 Year
  Sex: Male

DRUGS (1)
  1. LYRICA [Suspect]
     Indication: NEUROPATHY PERIPHERAL
     Dosage: 100 MG, 3X/DAY

REACTIONS (6)
  - WITHDRAWAL SYNDROME [None]
  - URTICARIA [None]
  - HYPERHIDROSIS [None]
  - NAUSEA [None]
  - APATHY [None]
  - ASTHENIA [None]
